FAERS Safety Report 5987492-1 (Version None)
Quarter: 2008Q4

REPORT INFORMATION
  Report Type: 
  Country: None (occurrence: None)
  Receive Date: 20081209
  Receipt Date: 20081128
  Transmission Date: 20090506
  Serious: Yes (Other)
  Sender: FDA-Public Use
  Company Number: GB-TEVA-181464ISR

PATIENT
  Age: 36 Year
  Sex: Female

DRUGS (4)
  1. CARBOPLATIN [Suspect]
     Indication: ADENOCARCINOMA
  2. GEMCITABINE HCL [Suspect]
     Indication: ADENOCARCINOMA
  3. ERLOTINIB [Suspect]
     Indication: ADENOCARCINOMA
     Dates: start: 20081024
  4. DOCETAXEL [Suspect]
     Indication: ADENOCARCINOMA

REACTIONS (1)
  - CONVULSION [None]
